FAERS Safety Report 12134932 (Version 1)
Quarter: 2016Q1

REPORT INFORMATION
  Report Type: Not Available
  Country: None (occurrence: US)
  Receive Date: 20160301
  Receipt Date: 20160301
  Transmission Date: 20160526
  Serious: Yes (Life-Threatening)
  Sender: FDA-Public Use
  Company Number: US-AKORN-25264

PATIENT
  Sex: Female

DRUGS (1)
  1. DRONABINOL. [Suspect]
     Active Substance: DRONABINOL

REACTIONS (6)
  - Chest discomfort [None]
  - Dyspnoea [None]
  - Dizziness [None]
  - Heart rate increased [None]
  - Swollen tongue [None]
  - Mouth swelling [None]
